FAERS Safety Report 11514087 (Version 1)
Quarter: 2015Q3

REPORT INFORMATION
  Report Type: Spontaneous
  Country: US (occurrence: US)
  Receive Date: 20150903
  Receipt Date: 20150903
  Transmission Date: 20151125
  Serious: Yes (Other)
  Sender: FDA-Public Use
  Company Number: US-ELI_LILLY_AND_COMPANY-US201211003826

PATIENT
  Sex: Female

DRUGS (1)
  1. CYMBALTA [Suspect]
     Active Substance: DULOXETINE HYDROCHLORIDE
     Indication: ANXIETY
     Dosage: 30 MG, BID

REACTIONS (8)
  - Hyperhidrosis [Unknown]
  - Suicidal ideation [Unknown]
  - Vomiting [Unknown]
  - Aggression [Unknown]
  - Headache [Unknown]
  - Tremor [Unknown]
  - Irritability [Unknown]
  - Heart rate increased [Unknown]
